FAERS Safety Report 23221336 (Version 1)
Quarter: 2023Q4

REPORT INFORMATION
  Report Type: Spontaneous
  Country: US (occurrence: US)
  Receive Date: 20231123
  Receipt Date: 20231123
  Transmission Date: 20240110
  Serious: No
  Sender: FDA-Public Use
  Company Number: US-BRISTOL-MYERS SQUIBB COMPANY-2023-169715

PATIENT
  Age: 99 Year
  Sex: Male

DRUGS (2)
  1. ELIQUIS [Suspect]
     Active Substance: APIXABAN
     Indication: Product used for unknown indication
     Route: 048
  2. ELIQUIS [Suspect]
     Active Substance: APIXABAN
     Dosage: 5MG TABLET SPLIT IN HALF (2.5 MG), ONE HALF ADMINISTERED IN THE MORNING AND ONE HALF ADMINISTERED AT
     Route: 048

REACTIONS (1)
  - Intentional product use issue [Unknown]
